FAERS Safety Report 17359398 (Version 1)
Quarter: 2020Q1

REPORT INFORMATION
  Report Type: Other
  Country: DE (occurrence: DE)
  Receive Date: 20200203
  Receipt Date: 20200203
  Transmission Date: 20200409
  Serious: Yes (Congenital Anomaly, Other)
  Sender: FDA-Public Use
  Company Number: DE-LUPIN PHARMACEUTICALS INC.-2020-00433

PATIENT
  Age: 1 Day
  Sex: Male
  Weight: 1.11 kg

DRUGS (9)
  1. LAMOTRIGINE. [Suspect]
     Active Substance: LAMOTRIGINE
     Indication: EPILEPSY
     Dosage: 400 (MG/D (BIS 100))/ INITIAL 100MG/D, DOSAGE INCREASED TO 400MG/D
     Route: 064
     Dates: start: 20180822, end: 20190417
  2. MECLIZINE [Concomitant]
     Active Substance: MECLIZINE HYDROCHLORIDE
     Indication: MORNING SICKNESS
     Dosage: UNK
     Route: 064
  3. SALBUTAMOL [Concomitant]
     Active Substance: ALBUTEROL
     Indication: ASTHMA
     Dosage: UNK
     Route: 064
     Dates: start: 20180822, end: 20181108
  4. DOXYLAMINE [Concomitant]
     Active Substance: DOXYLAMINE
     Indication: MORNING SICKNESS
     Dosage: UNK
     Route: 064
  5. JODID [Concomitant]
     Active Substance: IODINE
     Indication: HYPOTHYROIDISM
     Dosage: UNK
     Route: 064
     Dates: start: 20180822, end: 20181108
  6. L-THYROXINE [LEVOTHYROXINE SODIUM] [Concomitant]
     Active Substance: LEVOTHYROXINE SODIUM
     Indication: HYPOTHYROIDISM
     Dosage: 75 (???G/D)]/ 50 - 75 ???G/D
     Route: 064
     Dates: start: 20180822, end: 20181108
  7. FOLIC ACID. [Concomitant]
     Active Substance: FOLIC ACID
     Indication: PROPHYLAXIS OF NEURAL TUBE DEFECT
     Dosage: 5 MILLIGRAM, QD
     Route: 064
     Dates: start: 20180822, end: 20190417
  8. DIMENHYDRINAT [Concomitant]
     Active Substance: DIMENHYDRINATE
     Indication: MORNING SICKNESS
     Dosage: UNK
     Route: 064
  9. SYMBICORT [Concomitant]
     Active Substance: BUDESONIDE\FORMOTEROL FUMARATE DIHYDRATE
     Indication: ASTHMA
     Dosage: UNK
     Route: 064
     Dates: start: 20180822, end: 20181108

REACTIONS (2)
  - Foetal exposure during pregnancy [Unknown]
  - Epispadias [Unknown]

NARRATIVE: CASE EVENT DATE: 20190417
